FAERS Safety Report 17716094 (Version 3)
Quarter: 2020Q2

REPORT INFORMATION
  Report Type: Report from Study
  Country: GB (occurrence: GB)
  Receive Date: 20200428
  Receipt Date: 20200529
  Transmission Date: 20200714
  Serious: Yes (Other)
  Sender: FDA-Public Use
  Company Number: GB-TAKEDA-2019TUS010960

PATIENT
  Age: 69 Year
  Sex: Male
  Weight: 113 kg

DRUGS (7)
  1. BORTEZOMIB. [Suspect]
     Active Substance: BORTEZOMIB
     Indication: PLASMA CELL MYELOMA
     Dosage: 2.75 MILLIGRAM
     Route: 058
     Dates: start: 20171222, end: 20180510
  2. ZOLEDRONIC ACID [Concomitant]
     Active Substance: ZOLEDRONIC ACID
     Dosage: 4 MILLIGRAM
     Route: 065
  3. RIVAROXABAN [Concomitant]
     Active Substance: RIVAROXABAN
     Indication: THROMBOSIS PROPHYLAXIS
     Dosage: UNK
     Route: 065
  4. BORTEZOMIB. [Suspect]
     Active Substance: BORTEZOMIB
     Dosage: 2.75 MILLIGRAM, 1/WEEK
     Route: 058
     Dates: start: 20180511
  5. PREDNISONE. [Concomitant]
     Active Substance: PREDNISONE
     Dosage: 65 MILLIGRAM
     Route: 048
     Dates: start: 20180511
  6. MELPHALAN. [Concomitant]
     Active Substance: MELPHALAN
     Dosage: 18 MILLIGRAM
     Route: 048
     Dates: start: 20180511
  7. GABAPENTIN. [Concomitant]
     Active Substance: GABAPENTIN

REACTIONS (3)
  - Basal cell carcinoma [Recovered/Resolved]
  - Nausea [Recovered/Resolved]
  - Constipation [Recovered/Resolved]

NARRATIVE: CASE EVENT DATE: 20180706
